FAERS Safety Report 12190273 (Version 1)
Quarter: 2016Q1

REPORT INFORMATION
  Report Type: Spontaneous
  Country: US (occurrence: None)
  Receive Date: 20160317
  Receipt Date: 20160317
  Transmission Date: 20160526
  Serious: Yes (Other)
  Sender: FDA-Public Use
  Company Number: None

PATIENT
  Age: 60 Year
  Sex: Male
  Weight: 124.74 kg

DRUGS (21)
  1. LIPITOR [Concomitant]
     Active Substance: ATORVASTATIN CALCIUM
  2. PROZAC [Concomitant]
     Active Substance: FLUOXETINE HYDROCHLORIDE
  3. VITAMIN C [Concomitant]
     Active Substance: ASCORBIC ACID
  4. CATAPRES [Concomitant]
     Active Substance: CLONIDINE HYDROCHLORIDE
  5. MARIJUANA [Concomitant]
     Active Substance: CANNABIS SATIVA SUBSP. INDICA TOP
  6. CLARITIN [Concomitant]
     Active Substance: LORATADINE
  7. VITAMIN E [Concomitant]
     Active Substance: .ALPHA.-TOCOPHEROL
  8. AMLODIPINE [Concomitant]
     Active Substance: AMLODIPINE BESYLATE
  9. COREG [Concomitant]
     Active Substance: CARVEDILOL
  10. LISINOPRIL. [Concomitant]
     Active Substance: LISINOPRIL
  11. TOPAMAX [Concomitant]
     Active Substance: TOPIRAMATE
  12. GABAPENTIN. [Concomitant]
     Active Substance: GABAPENTIN
  13. VITAMIN D [Concomitant]
     Active Substance: CHOLECALCIFEROL
  14. PLAVIX [Concomitant]
     Active Substance: CLOPIDOGREL BISULFATE
  15. ABILIFY [Concomitant]
     Active Substance: ARIPIPRAZOLE
  16. METFORMIN [Concomitant]
     Active Substance: METFORMIN HYDROCHLORIDE
  17. INSULIN [Concomitant]
     Active Substance: INSULIN NOS
  18. FISH OIL [Concomitant]
     Active Substance: FISH OIL
  19. INVOKANA [Suspect]
     Active Substance: CANAGLIFLOZIN
     Indication: PRODUCT USED FOR UNKNOWN INDICATION
     Dosage: 1 PILL, ONCE DAILY, TAKEN BY MOUTH
     Dates: start: 20160201, end: 20160313
  20. WELLBUTRIN SR [Concomitant]
     Active Substance: BUPROPION HYDROCHLORIDE
  21. ASPIRIN. [Concomitant]
     Active Substance: ASPIRIN

REACTIONS (6)
  - Pollakiuria [None]
  - Therapy cessation [None]
  - Dysuria [None]
  - Blood creatinine increased [None]
  - Increased upper airway secretion [None]
  - Urine odour abnormal [None]

NARRATIVE: CASE EVENT DATE: 20160311
